FAERS Safety Report 13225435 (Version 2)
Quarter: 2017Q1

REPORT INFORMATION
  Report Type: Report from Study
  Country: CA (occurrence: CA)
  Receive Date: 20170213
  Receipt Date: 20170320
  Transmission Date: 20170428
  Serious: Yes (Other)
  Sender: FDA-Public Use
  Company Number: PHHY2013CA053573

PATIENT
  Age: 71 Year
  Sex: Female

DRUGS (2)
  1. SANDOSTATIN LAR DEPOT [Suspect]
     Active Substance: OCTREOTIDE ACETATE
     Indication: NEUROENDOCRINE TUMOUR
     Dosage: 30 MG, QMO (EVERY 4 WEEKS)
     Route: 030
     Dates: start: 20130523
  2. SANDOSTATIN [Suspect]
     Active Substance: OCTREOTIDE ACETATE
     Indication: NEUROENDOCRINE TUMOUR
     Dosage: 150 UG, BID
     Route: 058
     Dates: start: 20130515

REACTIONS (11)
  - Abdominal pain [Unknown]
  - Respiratory rate decreased [Unknown]
  - Constipation [Unknown]
  - Injection site pain [Unknown]
  - Temporomandibular joint syndrome [Unknown]
  - Facial pain [Unknown]
  - Oropharyngeal pain [Unknown]
  - Blood pressure increased [Unknown]
  - Malignant neoplasm progression [Unknown]
  - Cataract [Unknown]
  - Hepatic lesion [Unknown]

NARRATIVE: CASE EVENT DATE: 20130523
